FAERS Safety Report 7315976-2 (Version None)
Quarter: 2011Q1

REPORT INFORMATION
  Report Type: 
  Country: None (occurrence: None)
  Receive Date: 20110225
  Receipt Date: 20110211
  Transmission Date: 20110831
  Serious: Yes (Other)
  Sender: FDA-Public Use
  Company Number: PHHY2011FR11913

PATIENT
  Sex: Female

DRUGS (4)
  1. ACLASTA [Suspect]
     Indication: OSTEOPOROSIS POSTMENOPAUSAL
     Dosage: UNK
     Dates: start: 20100201
  2. FLECAINE [Concomitant]
     Indication: ATRIAL FIBRILLATION
     Dosage: 150 UNK, UNK
  3. KARDEGIC [Concomitant]
     Dosage: 75 MG, UNK
  4. VASTAREL [Concomitant]

REACTIONS (5)
  - ARTHRALGIA [None]
  - INFLUENZA LIKE ILLNESS [None]
  - MYALGIA [None]
  - PYREXIA [None]
  - FALL [None]
